FAERS Safety Report 6767263-9 (Version None)
Quarter: 2010Q2

REPORT INFORMATION
  Report Type: 
  Country: None (occurrence: None)
  Receive Date: 20100614
  Receipt Date: 20100608
  Transmission Date: 20101027
  Serious: Yes (Death, Life-Threatening)
  Sender: FDA-Public Use
  Company Number: JP-ASTRAZENECA-2010SE27112

PATIENT
  Sex: Male

DRUGS (32)
  1. MEROPEN [Suspect]
     Indication: BRONCHITIS
     Route: 042
     Dates: start: 20100528, end: 20100530
  2. GENINAX [Concomitant]
     Indication: BRONCHITIS
     Route: 048
     Dates: start: 20100522, end: 20100525
  3. GENINAX [Concomitant]
     Route: 048
     Dates: start: 20100522, end: 20100525
  4. BANAN [Concomitant]
     Indication: BRONCHITIS
     Route: 048
     Dates: start: 20100525, end: 20100530
  5. BANAN [Concomitant]
     Route: 048
     Dates: start: 20100526, end: 20100530
  6. CALONAL [Concomitant]
     Indication: PYREXIA
     Route: 048
     Dates: start: 20100522, end: 20100525
  7. CALONAL [Concomitant]
     Route: 048
     Dates: start: 20100526, end: 20100531
  8. COTRIM [Concomitant]
     Indication: BRONCHITIS CHRONIC
     Route: 048
     Dates: start: 20100522, end: 20100525
  9. COTRIM [Concomitant]
     Route: 048
     Dates: start: 20100526, end: 20100531
  10. ZITHROMAX [Concomitant]
     Indication: BRONCHITIS
     Route: 048
     Dates: start: 20100601, end: 20100601
  11. THEO-DUR [Concomitant]
     Indication: ASTHMA
     Route: 048
     Dates: start: 20100531, end: 20100602
  12. NEOPHYLLIN [Concomitant]
     Indication: ASTHMA
     Dosage: 2A DAILY
     Dates: start: 20100528, end: 20100531
  13. NEOPHYLLIN [Concomitant]
     Dosage: 1A DAILY
     Dates: start: 20100601, end: 20100602
  14. VANCOMYCIN HYDROCHLORIDE [Concomitant]
     Indication: BRONCHITIS
     Route: 048
     Dates: start: 20100531, end: 20100602
  15. SOLU-MEDROL [Concomitant]
     Indication: INTERSTITIAL LUNG DISEASE
     Dates: start: 20100531, end: 20100602
  16. DIGILANOGEN [Concomitant]
     Indication: ATRIAL FIBRILLATION
     Dosage: 1A DAILY
     Dates: start: 20100602, end: 20100602
  17. DIGILANOGEN [Concomitant]
     Indication: TACHYCARDIA
     Dosage: 1A DAILY
     Dates: start: 20100602, end: 20100602
  18. KLARICID [Concomitant]
     Indication: BRONCHITIS
     Route: 048
     Dates: start: 20100520, end: 20100522
  19. DIART [Concomitant]
     Indication: CARDIAC FAILURE CHRONIC
     Route: 048
     Dates: start: 20100522, end: 20100602
  20. DIART [Concomitant]
     Indication: ATRIAL FIBRILLATION
     Route: 048
     Dates: start: 20100522, end: 20100602
  21. HALFDIGOXIN-KY [Concomitant]
     Indication: CARDIAC FAILURE CHRONIC
     Route: 048
     Dates: start: 20100522, end: 20100602
  22. HALFDIGOXIN-KY [Concomitant]
     Indication: ATRIAL FIBRILLATION
     Route: 048
     Dates: start: 20100522, end: 20100602
  23. OPALMON [Concomitant]
     Indication: VERTEBRAL COLUMN MASS
     Route: 048
     Dates: start: 20100522, end: 20100602
  24. GANATON [Concomitant]
     Indication: GASTROSTOMY
     Route: 048
     Dates: start: 20100522, end: 20100602
  25. MUCODYNE [Concomitant]
     Indication: BRONCHITIS CHRONIC
     Route: 048
     Dates: start: 20100522, end: 20100602
  26. TSUMURA 54 YOKUKANSAN EKISU [Concomitant]
     Indication: AGITATION
     Route: 048
     Dates: start: 20100522, end: 20100602
  27. TSUMURA 54 YOKUKANSAN EKISU [Concomitant]
     Indication: DEMENTIA
     Route: 048
     Dates: start: 20100522, end: 20100602
  28. MEVALOTIN [Concomitant]
     Indication: HYPERLIPIDAEMIA
     Route: 048
     Dates: start: 20100522, end: 20100602
  29. MEILAX [Concomitant]
     Indication: INSOMNIA
     Route: 048
     Dates: start: 20100522, end: 20100602
  30. GASPORT [Concomitant]
     Indication: GASTRITIS
     Route: 048
     Dates: start: 20100522, end: 20100602
  31. URINORM [Concomitant]
     Indication: HYPERURICAEMIA
     Route: 048
     Dates: start: 20100522, end: 20100602
  32. ALOSENIN [Concomitant]
     Indication: CONSTIPATION
     Route: 048
     Dates: start: 20100522, end: 20100602

REACTIONS (2)
  - DEATH [None]
  - INTERSTITIAL LUNG DISEASE [None]
